FAERS Safety Report 8473583-2 (Version None)
Quarter: 2012Q2

REPORT INFORMATION
  Report Type: 
  Country: None (occurrence: None)
  Receive Date: 20120628
  Receipt Date: 20110706
  Transmission Date: 20120825
  Serious: Yes (Death)
  Sender: FDA-Public Use
  Company Number: US-MYLANLABS-2011S1012436

PATIENT
  Age: 36 Year
  Sex: Male
  Weight: 79.38 kg

DRUGS (13)
  1. CLOZAPINE [Suspect]
     Dosage: 200MG BID
     Route: 048
     Dates: start: 20081111, end: 20110612
  2. ATENOLOL [Concomitant]
  3. IBUPROFEN [Concomitant]
  4. BENADRYL [Concomitant]
     Indication: INSOMNIA
  5. LITHIUM CARBONATE [Concomitant]
  6. CLOZAPINE [Suspect]
     Indication: INTERMITTENT EXPLOSIVE DISORDER
     Route: 048
     Dates: start: 20081111, end: 20110612
  7. CLOZAPINE [Suspect]
     Dosage: 200MG BID
     Route: 048
     Dates: start: 20081111, end: 20110612
  8. CLOZAPINE [Suspect]
     Dosage: 200MG BID
     Route: 048
     Dates: start: 20081111, end: 20110612
  9. DESMOPRESSIN ACETATE [Concomitant]
  10. CLOZAPINE [Suspect]
     Indication: SCHIZOAFFECTIVE DISORDER
     Route: 048
     Dates: start: 20081111, end: 20110612
  11. DOCUSATE [Concomitant]
  12. CLOZAPINE [Suspect]
     Dosage: 200MG BID
     Route: 048
     Dates: start: 20081111, end: 20110612
  13. LACTULOSE [Concomitant]
     Indication: CONSTIPATION

REACTIONS (2)
  - CARDIO-RESPIRATORY ARREST [None]
  - GASTROINTESTINAL HAEMORRHAGE [None]
